FAERS Safety Report 9135148 (Version 1)
Quarter: 2013Q1

REPORT INFORMATION
  Report Type: Spontaneous
  Country: US (occurrence: US)
  Receive Date: 20130304
  Receipt Date: 20130304
  Transmission Date: 20140127
  Serious: Yes (Other)
  Sender: FDA-Public Use
  Company Number: PHEH2013US005024

PATIENT
  Sex: Female
  Weight: 56.24 kg

DRUGS (1)
  1. EXJADE [Suspect]
     Indication: MYELODYSPLASTIC SYNDROME
     Dosage: 1000 MG, QD
     Route: 048

REACTIONS (3)
  - Weight decreased [Unknown]
  - Localised infection [Unknown]
  - Gastrooesophageal reflux disease [Unknown]
